FAERS Safety Report 19074651 (Version 1)
Quarter: 2021Q1

REPORT INFORMATION
  Report Type: Report from Study
  Country: US (occurrence: US)
  Receive Date: 20210330
  Receipt Date: 20210330
  Transmission Date: 20210420
  Serious: Yes (Hospitalization)
  Sender: FDA-Public Use
  Company Number: US-REGENERON PHARMACEUTICALS, INC.-2021-36452

PATIENT

DRUGS (2)
  1. EYLEA [Suspect]
     Active Substance: AFLIBERCEPT
     Indication: DIABETIC RETINAL OEDEMA
     Dosage: 2 MG/0.05 ML, MONTHLY, INTO LEFT EYE
     Route: 031
     Dates: start: 20210319, end: 20210319
  2. EYLEA [Suspect]
     Active Substance: AFLIBERCEPT
     Indication: DIABETIC RETINOPATHY
     Dosage: 2 MG/0.05 ML, MONTHLY, INTO LEFT EYE
     Route: 031
     Dates: end: 20210319

REACTIONS (4)
  - Hypoaesthesia [Unknown]
  - Headache [Unknown]
  - Arterial thrombosis [Unknown]
  - Dysarthria [Unknown]

NARRATIVE: CASE EVENT DATE: 20210319
